FAERS Safety Report 5041122-4 (Version None)
Quarter: 2006Q3

REPORT INFORMATION
  Report Type: 
  Country: None (occurrence: None)
  Receive Date: 20060703
  Receipt Date: 20060301
  Transmission Date: 20061208
  Serious: Yes (Hospitalization)
  Sender: FDA-Public Use
  Company Number: US-ROCHE-438847

PATIENT
  Age: 17 Year
  Sex: Male
  Weight: 93 kg

DRUGS (6)
  1. ACCUTANE [Suspect]
     Dosage: PT WAS STARTED ON ACCUTANE 40MG 1 TAB PO DAILY FOR NODULAR AND CYSTIC SCARRING ACNE.
     Route: 048
     Dates: start: 19880608
  2. ACCUTANE [Suspect]
     Dosage: ALTERNATING DOSE
     Route: 048
     Dates: start: 19880706
  3. ACCUTANE [Suspect]
     Dosage: PT WAS GIVEN REFILL OF ACCUTANE 40MG ONE TAB DAILY ALTERNATING WITH TWO TABS DAILY.
     Route: 048
     Dates: start: 19880928
  4. ACCUTANE [Suspect]
     Dosage: PT WAS ALSO GIVEN A REFILL OF ACCUTANE
     Route: 048
     Dates: start: 19881025, end: 19881117
  5. ACCUTANE [Suspect]
     Dosage: PT WAS ON ACCUTANE 40MG 1 TAB QOD AND 2 TABS QOD
     Route: 048
     Dates: start: 19900808, end: 19900908
  6. TYLENOL (CAPLET) [Concomitant]
     Dosage: TAKEN 5 YEARS BEFORE TAKING ACCUTANE
     Dates: start: 19830615

REACTIONS (30)
  - ANXIETY [None]
  - CHEILITIS [None]
  - CROHN'S DISEASE [None]
  - DEPRESSION [None]
  - DIZZINESS [None]
  - DRUG ERUPTION [None]
  - DRUG HYPERSENSITIVITY [None]
  - DRY MOUTH [None]
  - DRY SKIN [None]
  - ERYTHEMA [None]
  - HEAD INJURY [None]
  - HEADACHE [None]
  - INFLAMMATORY BOWEL DISEASE [None]
  - INSOMNIA [None]
  - JOINT SPRAIN [None]
  - MUSCULOSKELETAL DISORDER [None]
  - NAUSEA [None]
  - NECK PAIN [None]
  - PERIRECTAL ABSCESS [None]
  - PHARYNGITIS [None]
  - PYREXIA [None]
  - ROAD TRAFFIC ACCIDENT [None]
  - SPINAL X-RAY ABNORMAL [None]
  - SUICIDAL IDEATION [None]
  - SUICIDE ATTEMPT [None]
  - SUNBURN [None]
  - TELANGIECTASIA [None]
  - TENDONITIS [None]
  - THERAPY NON-RESPONDER [None]
  - VISUAL DISTURBANCE [None]
